FAERS Safety Report 5103454-0 (Version None)
Quarter: 2006Q3

REPORT INFORMATION
  Report Type: 
  Country: None (occurrence: None)
  Receive Date: 20060913
  Receipt Date: 20060905
  Transmission Date: 20061208
  Serious: Yes (Death, Hospitalization)
  Sender: FDA-Public Use
  Company Number: US-JNJFOC-20060901693

PATIENT
  Age: 27 Year
  Sex: Male

DRUGS (2)
  1. ACETAMINOPHEN [Suspect]
     Indication: SKIN LACERATION
     Route: 048
  2. ACETAMINOPHEN [Suspect]
     Indication: NASOPHARYNGITIS
     Route: 048

REACTIONS (16)
  - ACCIDENTAL OVERDOSE [None]
  - ACTIVATED PARTIAL THROMBOPLASTIN TIME PROLONGED [None]
  - ALANINE AMINOTRANSFERASE INCREASED [None]
  - ASPARTATE AMINOTRANSFERASE INCREASED [None]
  - BLOOD POTASSIUM INCREASED [None]
  - BRAIN OEDEMA [None]
  - CONFUSIONAL STATE [None]
  - ENCEPHALOPATHY [None]
  - HEART RATE INCREASED [None]
  - HEPATIC FUNCTION ABNORMAL [None]
  - INCORRECT DOSE ADMINISTERED [None]
  - INTERNATIONAL NORMALISED RATIO INCREASED [None]
  - LACERATION [None]
  - PROTHROMBIN TIME PROLONGED [None]
  - RENAL IMPAIRMENT [None]
  - RESPIRATORY RATE INCREASED [None]
